FAERS Safety Report 7623308-5 (Version None)
Quarter: 2011Q3

REPORT INFORMATION
  Report Type: 
  Country: None (occurrence: None)
  Receive Date: 20110720
  Receipt Date: 20110708
  Transmission Date: 20111222
  Serious: Yes (Death)
  Sender: FDA-Public Use
  Company Number: IE-ROCHE-773791

PATIENT
  Sex: Male

DRUGS (4)
  1. XELODA [Suspect]
     Route: 048
     Dates: start: 20100901
  2. DIOVAN [Concomitant]
     Indication: BLOOD PRESSURE INCREASED
  3. LIPITOR [Concomitant]
  4. ACETYLSALICYLIC ACID SRT [Concomitant]

REACTIONS (3)
  - VASOSPASM [None]
  - ARRHYTHMIA [None]
  - ARTERIOSPASM CORONARY [None]
